FAERS Safety Report 9378901 (Version 2)
Quarter: 2013Q3

REPORT INFORMATION
  Report Type: Spontaneous
  Country: US (occurrence: US)
  Receive Date: 20130702
  Receipt Date: 20130808
  Transmission Date: 20140515
  Serious: Yes (Hospitalization, Other)
  Sender: FDA-Public Use
  Company Number: US-PFIZER INC-2013193773

PATIENT
  Age: 50 Year
  Sex: Female

DRUGS (3)
  1. FLUCONAZOLE [Suspect]
     Indication: COCCIDIOIDOMYCOSIS
     Dosage: 800 MG, DAILY
     Route: 048
     Dates: start: 20110926, end: 20130621
  2. FLUCONAZOLE [Suspect]
     Indication: MENINGITIS
  3. FLUCONAZOLE [Suspect]
     Indication: MYELITIS

REACTIONS (1)
  - Drug ineffective [Unknown]
